FAERS Safety Report 6823718-X (Version None)
Quarter: 2010Q3

REPORT INFORMATION
  Report Type: 
  Country: None (occurrence: None)
  Receive Date: 20100708
  Receipt Date: 20060821
  Transmission Date: 20110219
  Serious: No
  Sender: FDA-Public Use
  Company Number: US-PFIZER INC-2006102788

PATIENT
  Sex: Female
  Weight: 58.06 kg

DRUGS (7)
  1. CHANTIX [Suspect]
     Indication: EX-TOBACCO USER
     Dosage: EVERY DAY
     Route: 048
     Dates: start: 20060810, end: 20060910
  2. ZOLOFT [Concomitant]
  3. RESTORIL [Concomitant]
  4. ZOCOR [Concomitant]
  5. ROZEREM [Concomitant]
  6. DIAZEPAM [Concomitant]
  7. IBUPROFEN [Concomitant]

REACTIONS (1)
  - DRUG INEFFECTIVE [None]
